FAERS Safety Report 8431011-7 (Version None)
Quarter: 2012Q2

REPORT INFORMATION
  Report Type: 
  Country: None (occurrence: None)
  Receive Date: 20120612
  Receipt Date: 20120605
  Transmission Date: 20120825
  Serious: No
  Sender: FDA-Public Use
  Company Number: US-PFIZER INC-2012093965

PATIENT
  Sex: Female

DRUGS (3)
  1. NORGESTREL AND ETHINYL ESTRADIOL [Suspect]
     Indication: CONTRACEPTION
     Dosage: UNK
     Dates: start: 20111101
  2. NORGESTREL [Suspect]
     Dosage: 0.3 MG, UNK
  3. NORGESTREL AND ETHINYL ESTRADIOL [Suspect]
     Dosage: UNK

REACTIONS (4)
  - DRUG INEFFECTIVE [None]
  - PRODUCT QUALITY ISSUE [None]
  - UNINTENDED PREGNANCY [None]
  - AMENORRHOEA [None]
